FAERS Safety Report 6981710-9 (Version None)
Quarter: 2010Q3

REPORT INFORMATION
  Report Type: 
  Country: None (occurrence: None)
  Receive Date: 20100914
  Receipt Date: 20091020
  Transmission Date: 20110219
  Serious: No
  Sender: FDA-Public Use
  Company Number: US-PFIZER INC-2009254495

PATIENT
  Sex: Female
  Weight: 74.8 kg

DRUGS (5)
  1. LYRICA [Suspect]
     Indication: NEUROPATHY PERIPHERAL
     Dosage: 75 MG, 4X/DAY
  2. FEXOFENADINE HCL [Concomitant]
     Dosage: UNK
  3. BENZONATATE [Concomitant]
     Dosage: UNK
  4. DICLOFENAC AND MISOPROSTOL [Concomitant]
     Dosage: UNK
  5. ACETAMINOPHEN [Concomitant]
     Dosage: UNK

REACTIONS (3)
  - CHEST DISCOMFORT [None]
  - OEDEMA PERIPHERAL [None]
  - PRODUCTIVE COUGH [None]
